FAERS Safety Report 21065318 (Version 1)
Quarter: 2022Q3

REPORT INFORMATION
  Report Type: Spontaneous
  Country: CH (occurrence: CH)
  Receive Date: 20220711
  Receipt Date: 20220711
  Transmission Date: 20221027
  Serious: Yes (Other)
  Sender: FDA-Public Use
  Company Number: CH-VERTEX PHARMACEUTICALS-2022-010147

PATIENT
  Sex: Female
  Weight: 55 kg

DRUGS (1)
  1. SYMDEKO [Suspect]
     Active Substance: IVACAFTOR\TEZACAFTOR
     Indication: Cystic fibrosis
     Dosage: 150/100 MG
     Route: 048
     Dates: start: 202004, end: 202106

REACTIONS (4)
  - Abdominal pain upper [Not Recovered/Not Resolved]
  - Scar [Not Recovered/Not Resolved]
  - Acne [Not Recovered/Not Resolved]
  - Helicobacter infection [Recovering/Resolving]

NARRATIVE: CASE EVENT DATE: 20210101
